FAERS Safety Report 5961203-8 (Version None)
Quarter: 2008Q4

REPORT INFORMATION
  Report Type: 
  Country: None (occurrence: None)
  Receive Date: 20081121
  Receipt Date: 20081118
  Transmission Date: 20090506
  Serious: Yes (Hospitalization)
  Sender: FDA-Public Use
  Company Number: US-BIOGENIDEC-2008BI029137

PATIENT
  Age: 49 Year
  Sex: Female

DRUGS (1)
  1. TYSABRI [Suspect]
     Indication: MULTIPLE SCLEROSIS
     Route: 042
     Dates: start: 20080124

REACTIONS (8)
  - ADRENAL NEOPLASM [None]
  - COGNITIVE DISORDER [None]
  - CUSHING'S SYNDROME [None]
  - DEPRESSION [None]
  - FATIGUE [None]
  - INSOMNIA [None]
  - PAIN IN EXTREMITY [None]
  - PNEUMONIA [None]
